FAERS Safety Report 25419258 (Version 2)
Quarter: 2025Q2

REPORT INFORMATION
  Report Type: Report from Study
  Country: TH (occurrence: TH)
  Receive Date: 20250610
  Receipt Date: 20250616
  Transmission Date: 20250716
  Serious: Yes (Death)
  Sender: DAIICHI
  Company Number: TH-DSJP-DS-2025-146374-TH

PATIENT
  Age: 59 Year
  Sex: Female

DRUGS (2)
  1. ENHERTU [Suspect]
     Active Substance: FAM-TRASTUZUMAB DERUXTECAN-NXKI
     Indication: HER2 low breast cancer
     Route: 042
     Dates: start: 20250425, end: 20250425
  2. ENHERTU [Suspect]
     Active Substance: FAM-TRASTUZUMAB DERUXTECAN-NXKI
     Indication: Breast cancer metastatic

REACTIONS (1)
  - Death [Fatal]

NARRATIVE: CASE EVENT DATE: 20250515
